FAERS Safety Report 20412876 (Version 1)
Quarter: 2022Q1

REPORT INFORMATION
  Report Type: Spontaneous
  Country: CZ (occurrence: CZ)
  Receive Date: 20220201
  Receipt Date: 20220201
  Transmission Date: 20220423
  Serious: No
  Sender: FDA-Public Use
  Company Number: CZ-Gedeon Richter Plc.-2022_GR_000578

PATIENT
  Sex: Male

DRUGS (1)
  1. CARIPRAZINE HYDROCHLORIDE [Suspect]
     Active Substance: CARIPRAZINE HYDROCHLORIDE
     Indication: Product used for unknown indication

REACTIONS (2)
  - Visual impairment [Unknown]
  - Inappropriate schedule of product administration [Unknown]
